FAERS Safety Report 7499920-3 (Version None)
Quarter: 2011Q2

REPORT INFORMATION
  Report Type: 
  Country: None (occurrence: None)
  Receive Date: 20110524
  Receipt Date: 20110518
  Transmission Date: 20111010
  Serious: Yes (Life-Threatening, Hospitalization, Disabling, Other)
  Sender: FDA-Public Use
  Company Number: US-ASTRAZENECA-2009SE31409

PATIENT
  Age: 20306 Day
  Sex: Female
  Weight: 97.5 kg

DRUGS (9)
  1. AMARYL [Concomitant]
     Indication: DIABETES MELLITUS
  2. METPORMINER [Concomitant]
     Indication: DIABETES MELLITUS
     Dosage: 2 GM DAILY
  3. CRESTOR [Suspect]
     Indication: LIPIDS
     Route: 048
     Dates: start: 20090713, end: 20090904
  4. CALCIUM CARBONATE [Concomitant]
  5. VIT D [Concomitant]
  6. BENICAR [Concomitant]
     Indication: DIABETES MELLITUS
  7. MULTIVIT [Concomitant]
  8. ASPIRIN [Concomitant]
  9. LIPITOR [Concomitant]
     Dates: start: 20070201, end: 20090113

REACTIONS (8)
  - CARPAL TUNNEL SYNDROME [None]
  - FALL [None]
  - BLOOD CREATINE PHOSPHOKINASE [None]
  - FATIGUE [None]
  - QUADRIPLEGIA [None]
  - RHABDOMYOLYSIS [None]
  - HEAD INJURY [None]
  - MYOPATHY [None]
